FAERS Safety Report 6118824-1 (Version None)
Quarter: 2009Q1

REPORT INFORMATION
  Report Type: 
  Country: None (occurrence: None)
  Receive Date: 20090316
  Receipt Date: 20090302
  Transmission Date: 20090719
  Serious: Yes (Hospitalization)
  Sender: FDA-Public Use
  Company Number: HU-RANBAXY-2009RR-22421

PATIENT
  Age: 19 Year
  Sex: Male

DRUGS (1)
  1. SOTRET [Suspect]
     Indication: ACNE
     Dosage: 10-20 MG, 30 MG
     Route: 048

REACTIONS (2)
  - VERTIGO [None]
  - VOMITING [None]
